FAERS Safety Report 21264039 (Version 2)
Quarter: 2022Q3

REPORT INFORMATION
  Report Type: Other
  Country: US (occurrence: None)
  Receive Date: 20220829
  Receipt Date: 20220906
  Transmission Date: 20221027
  Serious: Yes (Other)
  Sender: FDA-Public Use
  Company Number: US-ROCHE-3167831

PATIENT
  Age: 57 Year
  Sex: Male
  Weight: 91 kg

DRUGS (17)
  1. OCREVUS [Suspect]
     Active Substance: OCRELIZUMAB
     Indication: Relapsing-remitting multiple sclerosis
     Dosage: SUBSEQUENT DOSE ON: 04/SEP/2020
     Route: 042
     Dates: start: 20190329
  2. BACLOFEN [Concomitant]
     Active Substance: BACLOFEN
  3. COENZYME Q10 [Concomitant]
     Active Substance: DIETARY SUPPLEMENT\UBIDECARENONE
  4. KETOCONAZOLE [Concomitant]
     Active Substance: KETOCONAZOLE
     Dates: start: 20190112
  5. CYANOCOBALAMIN [Concomitant]
     Active Substance: CYANOCOBALAMIN
     Dosage: 1000 MCG/ML
     Dates: start: 20220112
  6. HYDROCODONE [Concomitant]
     Active Substance: HYDROCODONE
     Route: 048
     Dates: start: 20220112
  7. DIAZEPAM [Concomitant]
     Active Substance: DIAZEPAM
     Route: 048
     Dates: start: 20220112
  8. DIPHENHYDRAMINE [Concomitant]
     Active Substance: DIPHENHYDRAMINE
     Dosage: 50MG/ML
     Route: 042
     Dates: start: 20210921
  9. FINASTERIDE [Concomitant]
     Active Substance: FINASTERIDE
     Route: 048
     Dates: start: 20211201
  10. GLUTAMINE [Concomitant]
     Active Substance: GLUTAMINE
     Dosage: 2-6MG
     Dates: start: 20220126
  11. LIDOCAINE [Concomitant]
     Active Substance: LIDOCAINE
     Route: 061
     Dates: start: 20211122
  12. METHYLPREDNISOLONE SODIUM SUCCINATE [Concomitant]
     Active Substance: METHYLPREDNISOLONE SODIUM SUCCINATE
     Route: 042
     Dates: start: 20210921
  13. OMEGA 3 [Concomitant]
     Active Substance: CAPSAICIN
     Dates: start: 20220126
  14. PREDNISONE [Concomitant]
     Active Substance: PREDNISONE
     Route: 048
     Dates: start: 20220109
  15. PREGABALIN [Concomitant]
     Active Substance: PREGABALIN
     Route: 048
     Dates: start: 20220121
  16. TADALAFIL [Concomitant]
     Active Substance: TADALAFIL
     Route: 048
     Dates: start: 20211229
  17. VALSARTAN [Concomitant]
     Active Substance: VALSARTAN
     Route: 048
     Dates: start: 20211019

REACTIONS (9)
  - Multiple sclerosis [Unknown]
  - Thrombocytosis [Unknown]
  - Sciatica [Unknown]
  - Polycythaemia [Unknown]
  - Musculoskeletal pain [Unknown]
  - Vitamin D deficiency [Unknown]
  - COVID-19 [Unknown]
  - Back pain [Unknown]
  - Radiculopathy [Unknown]

NARRATIVE: CASE EVENT DATE: 20190419
